FAERS Safety Report 4386550-5 (Version None)
Quarter: 2004Q2

REPORT INFORMATION
  Report Type: 
  Country: None (occurrence: None)
  Receive Date: 20040623
  Receipt Date: 20040610
  Transmission Date: 20050107
  Serious: Yes (Hospitalization, Other)
  Sender: FDA-Public Use
  Company Number: 2004-02583

PATIENT
  Age: 39 Year
  Sex: Female

DRUGS (2)
  1. FLUOROURACIL [Suspect]
     Indication: CERVIX CARCINOMA
     Dosage: INTRAVENOUS
     Route: 042
  2. CISPLATIN [Concomitant]

REACTIONS (5)
  - CORONARY ARTERY DISSECTION [None]
  - DEHYDRATION [None]
  - MYOCARDIAL INFARCTION [None]
  - POST PROCEDURAL VOMITING [None]
  - SCAR [None]
